FAERS Safety Report 5530858-4 (Version None)
Quarter: 2007Q4

REPORT INFORMATION
  Report Type: 
  Country: None (occurrence: None)
  Receive Date: 20071130
  Receipt Date: 20071128
  Transmission Date: 20080405
  Serious: Yes (Hospitalization)
  Sender: FDA-Public Use
  Company Number: JP-SANOFI-SYNTHELABO-F01200600094

PATIENT
  Sex: Male
  Weight: 46 kg

DRUGS (3)
  1. CALCIUM LEVOFOLINATE [Suspect]
     Dosage: 275 MG/BODY = 195 MG/M2
     Route: 042
     Dates: start: 20051213, end: 20051213
  2. FLUOROURACIL [Suspect]
     Dosage: 460 MG/BODY = 326.2 MG/M2 IN BOLUS THEN 2800 MG/BODY = 1985.8 MG/M2 AS CONTINUOUS INFUSION
     Route: 042
     Dates: start: 20051213, end: 20051214
  3. OXALIPLATIN [Suspect]
     Indication: COLON CANCER
     Dosage: 96MG/BODY = 68.1 MG/M2
     Route: 042
     Dates: start: 20051213, end: 20051213

REACTIONS (2)
  - CHOLECYSTITIS INFECTIVE [None]
  - THROMBOCYTOPENIA [None]
